FAERS Safety Report 4847533-1 (Version None)
Quarter: 2005Q4

REPORT INFORMATION
  Report Type: 
  Country: None (occurrence: None)
  Receive Date: 20051207
  Receipt Date: 20051124
  Transmission Date: 20060501
  Serious: Yes (Other)
  Sender: FDA-Public Use
  Company Number: PHBS2005ES17589

PATIENT
  Age: 70 Year
  Sex: Male

DRUGS (3)
  1. LESCOL [Suspect]
     Dosage: 80 MG, UNK
     Route: 048
  2. ZYLORIC [Suspect]
     Indication: HYPERURICAEMIA
     Dosage: 300 MG/DAY
     Route: 048
     Dates: start: 20051117, end: 20051122
  3. CO-DIOVAN FORTE [Suspect]

REACTIONS (3)
  - DERMATITIS EXFOLIATIVE [None]
  - JAUNDICE [None]
  - PRURITUS [None]
